FAERS Safety Report 13316807 (Version 2)
Quarter: 2017Q1

REPORT INFORMATION
  Report Type: Report from Study
  Country: FR (occurrence: FR)
  Receive Date: 20170308
  Receipt Date: 20170312
  Transmission Date: 20170428
  Serious: Yes (Hospitalization, Other)
  Sender: FDA-Public Use
  Company Number: FR-AMGEN-FRANI2017035559

PATIENT
  Age: 69 Year
  Sex: Female
  Weight: 78 kg

DRUGS (5)
  1. ETANERCEPT [Suspect]
     Active Substance: ETANERCEPT
     Indication: PSORIASIS
     Dosage: 50 MG, 2X/WEEK
     Route: 058
     Dates: start: 20160404, end: 201607
  2. ACETYLSALICYLATE SODIUM [Concomitant]
     Active Substance: ASPIRIN SODIUM
     Dosage: 75 MG, 1X/DAY
  3. FENOFIBRATE. [Concomitant]
     Active Substance: FENOFIBRATE
  4. METHOTREXATE SODIUM. [Suspect]
     Active Substance: METHOTREXATE SODIUM
     Indication: PSORIASIS
     Dosage: UNK
     Route: 065
     Dates: start: 20120401, end: 201210
  5. HUMIRA [Suspect]
     Active Substance: ADALIMUMAB
     Indication: PSORIASIS
     Dosage: 40 MG, EVERY 2 WEEKS
     Route: 058
     Dates: start: 20140107, end: 20140312

REACTIONS (3)
  - Basal cell carcinoma [Recovered/Resolved]
  - Pulmonary embolism [Recovered/Resolved]
  - Respiratory disorder [Recovered/Resolved]

NARRATIVE: CASE EVENT DATE: 20141124
